FAERS Safety Report 10693103 (Version 2)
Quarter: 2015Q1

REPORT INFORMATION
  Report Type: Spontaneous
  Country: CA (occurrence: CA)
  Receive Date: 20150106
  Receipt Date: 20150324
  Transmission Date: 20150720
  Serious: Yes (Other)
  Sender: FDA-Public Use
  Company Number: CA-PFIZER INC-2015000212

PATIENT
  Sex: Female

DRUGS (1)
  1. DILANTIN [Suspect]
     Active Substance: PHENYTOIN
     Indication: GENERALISED TONIC-CLONIC SEIZURE
     Dosage: 100 MG, 3 TABLETS AT NIGHT

REACTIONS (12)
  - Pain [Not Recovered/Not Resolved]
  - Skin cancer [Unknown]
  - Hernia [Unknown]
  - Gout [Not Recovered/Not Resolved]
  - Product taste abnormal [Not Recovered/Not Resolved]
  - Localised infection [Recovered/Resolved]
  - Breast cancer [Unknown]
  - Arthropathy [Recovered/Resolved]
  - Memory impairment [Not Recovered/Not Resolved]
  - Seizure [Recovered/Resolved]
  - Arthritis [Not Recovered/Not Resolved]
  - Diarrhoea [Recovered/Resolved]

NARRATIVE: CASE EVENT DATE: 1980
